FAERS Safety Report 8078038-5 (Version None)
Quarter: 2012Q1

REPORT INFORMATION
  Report Type: 
  Country: None (occurrence: None)
  Receive Date: 20120127
  Receipt Date: 20110106
  Transmission Date: 20120608
  Serious: No
  Sender: FDA-Public Use
  Company Number: US-ABBOTT-11P-163-0695890-00

PATIENT
  Sex: Female
  Weight: 59.02 kg

DRUGS (10)
  1. NASONEX [Concomitant]
     Indication: HYPERSENSITIVITY
  2. ASPIRIN [Concomitant]
     Indication: PRODUCT USED FOR UNKNOWN INDICATION
  3. CLARINEX [Concomitant]
     Indication: HYPERSENSITIVITY
  4. BENADRYL [Concomitant]
     Indication: HYPERSENSITIVITY
  5. BENADRYL [Concomitant]
     Indication: PRURITUS
  6. NASONEX [Concomitant]
     Indication: ASTHMA
  7. PROVENTIL [Concomitant]
     Indication: PRODUCT USED FOR UNKNOWN INDICATION
  8. UNKNOWN MEDICATION [Concomitant]
     Indication: PRODUCT USED FOR UNKNOWN INDICATION
  9. HUMIRA [Suspect]
     Indication: PSORIASIS
     Dates: start: 20101001
  10. ADVAIR DISKUS 100/50 [Concomitant]
     Indication: ASTHMA

REACTIONS (2)
  - MIGRAINE [None]
  - RASH PRURITIC [None]
